FAERS Safety Report 10067497 (Version 3)
Quarter: 2014Q2

REPORT INFORMATION
  Report Type: Spontaneous
  Country: CH (occurrence: CH)
  Receive Date: 20140409
  Receipt Date: 20140507
  Transmission Date: 20141212
  Serious: Yes (Other)
  Sender: FDA-Public Use
  Company Number: CH-JNJFOC-20140314190

PATIENT
  Age: 65 Year
  Sex: Male

DRUGS (5)
  1. SIMPONI [Suspect]
     Indication: CAPLAN^S SYNDROME
     Route: 058
     Dates: start: 20140303
  2. SIMPONI [Suspect]
     Indication: CAPLAN^S SYNDROME
     Route: 058
     Dates: start: 20140203
  3. ARAVA [Concomitant]
     Indication: CAPLAN^S SYNDROME
     Route: 048
  4. LODINE [Concomitant]
     Indication: CAPLAN^S SYNDROME
     Dosage: SINCE YEARS
     Route: 048
  5. SPIRICORT [Concomitant]
     Indication: CAPLAN^S SYNDROME
     Dosage: SINCE YEARS
     Route: 048

REACTIONS (6)
  - Bronchopneumonia [Recovered/Resolved]
  - General physical health deterioration [Unknown]
  - Joint swelling [Not Recovered/Not Resolved]
  - Arthralgia [Not Recovered/Not Resolved]
  - Drug effect decreased [Unknown]
  - Off label use [Unknown]
